FAERS Safety Report 9238386 (Version 1)
Quarter: 2013Q2

REPORT INFORMATION
  Report Type: Spontaneous
  Country: CA (occurrence: None)
  Receive Date: 20130416
  Receipt Date: 20130416
  Transmission Date: 20140414
  Serious: Yes (Hospitalization)
  Sender: FDA-Public Use
  Company Number: TPA2013A01735

PATIENT
  Age: 8 Decade
  Sex: Male

DRUGS (1)
  1. ULORIC (FEBUXOSTAT) [Suspect]
     Indication: GOUT
     Dosage: 80 MG (80 MG, 1 IN 1 D)

REACTIONS (4)
  - Myopathy [None]
  - Rhabdomyolysis [None]
  - Asthenia [None]
  - Hepatic enzyme increased [None]
